FAERS Safety Report 5889393-6 (Version None)
Quarter: 2008Q3

REPORT INFORMATION
  Report Type: 
  Country: None (occurrence: None)
  Receive Date: 20080919
  Receipt Date: 20080801
  Transmission Date: 20090109
  Serious: No
  Sender: FDA-Public Use
  Company Number: US-BAYER-200830357NA

PATIENT
  Age: 45 Year
  Sex: Female
  Weight: 73 kg

DRUGS (1)
  1. YAZ [Suspect]
     Indication: PROPHYLAXIS
     Route: 048
     Dates: start: 20080701

REACTIONS (5)
  - ANXIETY [None]
  - DECREASED APPETITE [None]
  - METRORRHAGIA [None]
  - OFF LABEL USE [None]
  - WITHDRAWAL BLEEDING IRREGULAR [None]
